FAERS Safety Report 14313683 (Version 1)
Quarter: 2017Q4

REPORT INFORMATION
  Report Type: Spontaneous
  Country: FI (occurrence: FI)
  Receive Date: 20171221
  Receipt Date: 20171221
  Transmission Date: 20180321
  Serious: Yes (Hospitalization, Other)
  Sender: FDA-Public Use
  Company Number: FI-BAYER-2017-238444

PATIENT
  Age: 38 Year
  Sex: Female

DRUGS (2)
  1. MIRENA [Suspect]
     Active Substance: LEVONORGESTREL
     Dosage: 20 MCG/24HR, CONT
     Route: 015
     Dates: start: 201309, end: 20171205
  2. MIRENA [Suspect]
     Active Substance: LEVONORGESTREL

REACTIONS (10)
  - Retained placenta or membranes [None]
  - Pregnancy with contraceptive device [None]
  - Uterine infection [None]
  - Haemorrhage in pregnancy [None]
  - Preterm premature rupture of membranes [None]
  - Amenorrhoea [None]
  - Drug ineffective [None]
  - Abortion spontaneous [None]
  - Amniotic fluid volume decreased [None]
  - Pyrexia [None]

NARRATIVE: CASE EVENT DATE: 20171004
